FAERS Safety Report 17066491 (Version 1)
Quarter: 2019Q4

REPORT INFORMATION
  Report Type: Spontaneous
  Country: US (occurrence: US)
  Receive Date: 20191122
  Receipt Date: 20191122
  Transmission Date: 20200122
  Serious: Yes (Other)
  Sender: FDA-Public Use
  Company Number: US-BIODELIVERY SCIENCES INTERNATIONAL-2019BDSI0810

PATIENT
  Age: 42 Year
  Sex: Female
  Weight: 59.93 kg

DRUGS (1)
  1. BUPRENORPHINE. [Suspect]
     Active Substance: BUPRENORPHINE
     Indication: PAIN
     Route: 002
     Dates: start: 2018

REACTIONS (5)
  - Product administration error [Recovered/Resolved]
  - Drug withdrawal syndrome [Recovered/Resolved]
  - Patient dissatisfaction with treatment [Not Recovered/Not Resolved]
  - Product availability issue [Unknown]
  - Wrong technique in product usage process [Recovered/Resolved]

NARRATIVE: CASE EVENT DATE: 201909
